FAERS Safety Report 25490768 (Version 1)
Quarter: 2025Q2

REPORT INFORMATION
  Report Type: Spontaneous
  Country: US (occurrence: US)
  Receive Date: 20250627
  Receipt Date: 20250627
  Transmission Date: 20250717
  Serious: No
  Sender: PFIZER
  Company Number: US-PFIZER INC-PV202500076790

PATIENT
  Sex: Female

DRUGS (3)
  1. IBRANCE [Suspect]
     Active Substance: PALBOCICLIB
  2. KISQALI [Suspect]
     Active Substance: RIBOCICLIB SUCCINATE
  3. VERZENIO [Suspect]
     Active Substance: ABEMACICLIB

REACTIONS (1)
  - Fatigue [Unknown]
